FAERS Safety Report 5004089-0 (Version None)
Quarter: 2006Q2

REPORT INFORMATION
  Report Type: 
  Country: None (occurrence: None)
  Receive Date: 20060517
  Receipt Date: 20060508
  Transmission Date: 20061013
  Serious: Yes (Hospitalization, Other)
  Sender: FDA-Public Use
  Company Number: US-ABBOTT-06P-163-0332626-00

PATIENT
  Sex: Female

DRUGS (3)
  1. HUMIRA [Suspect]
     Indication: RHEUMATOID ARTHRITIS
     Route: 058
     Dates: start: 20030101, end: 20051101
  2. HUMIRA [Suspect]
     Route: 058
     Dates: start: 20060329
  3. MELOXICAM [Concomitant]
     Indication: RHEUMATOID ARTHRITIS
     Route: 048

REACTIONS (7)
  - DERMATITIS CONTACT [None]
  - DIZZINESS [None]
  - FATIGUE [None]
  - PRECANCEROUS CELLS PRESENT [None]
  - SCAB [None]
  - TREMOR [None]
  - VASCULITIS GASTROINTESTINAL [None]
